FAERS Safety Report 7085842-9 (Version None)
Quarter: 2010Q4

REPORT INFORMATION
  Report Type: 
  Country: None (occurrence: None)
  Receive Date: 20101105
  Receipt Date: 20101102
  Transmission Date: 20110411
  Serious: Yes (Other)
  Sender: FDA-Public Use
  Company Number: US-PERRIGO-10US014035

PATIENT
  Sex: Female
  Weight: 61.224 kg

DRUGS (10)
  1. POLYETHYLENE GLYCOL 3350 [Suspect]
     Indication: PROPHYLAXIS
     Dosage: 17 G, QD
     Route: 048
     Dates: start: 20100701, end: 20101001
  2. POLYETHYLENE GLYCOL 3350 [Suspect]
     Dosage: 17 G, QOD
     Route: 048
     Dates: start: 20101020
  3. CALCIUM CHANNEL BLOCKERS [Concomitant]
     Indication: HYPERTENSION
     Dosage: UNK
     Route: 065
     Dates: start: 20100901, end: 20101013
  4. NORVASC [Concomitant]
     Indication: HYPERTENSION
     Dosage: UNK
     Route: 048
     Dates: start: 19950101, end: 20100901
  5. NORVASC [Concomitant]
     Dosage: 5 MG, QD
     Route: 048
     Dates: start: 20101014
  6. BISOPROLOL [Concomitant]
     Indication: BLOOD PRESSURE
     Dosage: 10 MG
     Route: 065
     Dates: start: 20070101
  7. LORAZEPAM [Concomitant]
     Indication: ANXIETY
     Dosage: 1 MG
     Route: 065
     Dates: start: 20070101
  8. LORAZEPAM [Concomitant]
     Indication: NERVOUSNESS
  9. ASPIRIN [Concomitant]
     Indication: PAIN
     Dosage: UNK
     Route: 065
     Dates: start: 19600101
  10. ALKA-SELTZER [Concomitant]
     Indication: PAIN
     Dosage: PRN
     Route: 048
     Dates: start: 19600101

REACTIONS (2)
  - BLOOD PRESSURE INCREASED [None]
  - INCORRECT DRUG ADMINISTRATION DURATION [None]
